FAERS Safety Report 8883353 (Version 2)
Quarter: 2013Q2

REPORT INFORMATION
  Report Type: Report from Study
  Country: JP (occurrence: JP)
  Receive Date: 20121102
  Receipt Date: 20130521
  Transmission Date: 20140414
  Serious: Yes (Other)
  Sender: FDA-Public Use
  Company Number: JP-VERTEX PHARMACEUTICAL INC.-2012-023926

PATIENT
  Age: 55 Year
  Sex: Male

DRUGS (8)
  1. VX-950 (TELAPREVIR) [Suspect]
     Indication: CHRONIC HEPATITIS C
     Dosage: 2250 MG, QD
     Route: 048
     Dates: start: 20120106, end: 20120331
  2. RIBAVIRIN [Suspect]
     Indication: CHRONIC HEPATITIS C
     Dosage: 600 MG, QD
     Route: 048
     Dates: start: 20120106, end: 20120127
  3. RIBAVIRIN [Suspect]
     Dosage: 400 MG, QD
     Route: 048
     Dates: start: 20120128, end: 20120331
  4. RIBAVIRIN [Suspect]
     Dosage: 600 MG, QD
     Route: 048
     Dates: start: 20120401
  5. PEGINTRON /01543001/ [Suspect]
     Indication: CHRONIC HEPATITIS C
     Dosage: 1.49 ?G/KG, WEEKLY
     Route: 058
     Dates: start: 20120106
  6. XYZAL [Concomitant]
     Dosage: 5 MG, QD
     Route: 048
     Dates: start: 20120106
  7. ALLELOCK [Concomitant]
     Dosage: UNK
     Route: 048
     Dates: start: 20120106
  8. ZYLORIC [Concomitant]
     Dosage: 100 MG, QD
     Route: 048
     Dates: end: 20120331

REACTIONS (1)
  - Neutrophil count decreased [Recovered/Resolved]
